FAERS Safety Report 16152061 (Version 1)
Quarter: 2019Q2

REPORT INFORMATION
  Report Type: Report from Study
  Country: GB (occurrence: GB)
  Receive Date: 20190403
  Receipt Date: 20190403
  Transmission Date: 20190711
  Serious: Yes (Other)
  Sender: FDA-Public Use
  Company Number: GB-PFIZER INC-2019137180

PATIENT
  Sex: Female

DRUGS (1)
  1. LEVETIRACETAM. [Suspect]
     Active Substance: LEVETIRACETAM

REACTIONS (6)
  - Anger [Unknown]
  - Insomnia [Unknown]
  - Psychotic behaviour [Unknown]
  - Weight decreased [Unknown]
  - Seizure [Unknown]
  - Psychomotor hyperactivity [Unknown]
